FAERS Safety Report 5827157-X (Version None)
Quarter: 2008Q3

REPORT INFORMATION
  Report Type: 
  Country: None (occurrence: None)
  Receive Date: 20080729
  Receipt Date: 20080729
  Transmission Date: 20090109
  Serious: Yes (Other)
  Sender: FDA-Public Use
  Company Number: None

PATIENT
  Age: 33 Year
  Sex: Female
  Weight: 73.9363 kg

DRUGS (1)
  1. VERAMYST [Suspect]
     Indication: SEASONAL ALLERGY
     Dosage: ONE SQUIRT IN EACH NOSTRIL NASAL
     Route: 045
     Dates: start: 20080723, end: 20080725

REACTIONS (1)
  - INSOMNIA [None]
